FAERS Safety Report 8277308-5 (Version None)
Quarter: 2012Q2

REPORT INFORMATION
  Report Type: 
  Country: None (occurrence: None)
  Receive Date: 20120412
  Receipt Date: 20120402
  Transmission Date: 20120825
  Serious: Yes (Hospitalization)
  Sender: FDA-Public Use
  Company Number: FR-GLAXOSMITHKLINE-B0786939A

PATIENT
  Sex: Female
  Weight: 74 kg

DRUGS (20)
  1. ARIXTRA [Suspect]
     Indication: EMBOLISM VENOUS
     Dosage: 7.5MG PER DAY
     Route: 058
     Dates: start: 20120129, end: 20120201
  2. ALDACTONE [Concomitant]
     Dosage: 100MG PER DAY
  3. LASIX [Concomitant]
     Dosage: 2TAB PER DAY
  4. ESIDRIX [Concomitant]
     Dosage: 25MG PER DAY
  5. ESCITALOPRAM OXALATE [Concomitant]
     Dosage: 15MG PER DAY
  6. PREDNISONE TAB [Concomitant]
     Dosage: 12MG PER DAY
  7. PRAZEPAM [Concomitant]
     Dosage: 10MG PER DAY
  8. NEXIUM [Concomitant]
     Dosage: 20MG PER DAY
  9. MORPHINE SULFATE [Concomitant]
  10. FLOLAN [Concomitant]
     Indication: PULMONARY ARTERIAL HYPERTENSION
     Dates: start: 20080101
  11. POTASSIUM CHLORIDE [Concomitant]
     Dosage: 8TAB PER DAY
  12. REVATIO [Concomitant]
     Indication: PULMONARY ARTERIAL HYPERTENSION
     Dates: start: 20080101
  13. MYFORTIC [Concomitant]
     Dosage: 1TAB TWICE PER DAY
     Route: 048
  14. XANAX [Concomitant]
     Dosage: .25MG THREE TIMES PER DAY
  15. COUMADIN [Concomitant]
  16. ANTIVITAMINS K [Concomitant]
  17. ESCITALOPRAM OXALATE [Concomitant]
     Dosage: 15MG PER DAY
     Route: 048
  18. MYFORTIC [Concomitant]
     Indication: RENAL FAILURE CHRONIC
     Dosage: 2TAB TWICE PER DAY
     Route: 048
  19. ATARAX [Concomitant]
     Dosage: 25MG PER DAY
  20. NOCERTONE [Concomitant]
     Dosage: 60MG PER DAY

REACTIONS (2)
  - PYREXIA [None]
  - HAEMATOMA [None]
